FAERS Safety Report 9713018 (Version 1)
Quarter: 2013Q4

REPORT INFORMATION
  Report Type: Spontaneous
  Country: CA (occurrence: CA)
  Receive Date: 20131126
  Receipt Date: 20131126
  Transmission Date: 20140711
  Serious: Yes (Other)
  Sender: FDA-Public Use
  Company Number: CA-BAYER-2013-141361

PATIENT
  Age: 46 Year
  Sex: Male

DRUGS (1)
  1. BETASERON [Suspect]
     Indication: RELAPSING-REMITTING MULTIPLE SCLEROSIS
     Dosage: 250 MG, QOD
     Route: 058

REACTIONS (12)
  - Multiple sclerosis relapse [None]
  - Balance disorder [None]
  - Visual acuity reduced [None]
  - Amnesia [None]
  - Multiple sclerosis relapse [None]
  - Amnesia [None]
  - Visual acuity reduced [None]
  - Balance disorder [None]
  - Multiple sclerosis relapse [None]
  - Amnesia [None]
  - Visual acuity reduced [None]
  - Balance disorder [None]
